FAERS Safety Report 26064553 (Version 2)
Quarter: 2025Q4

REPORT INFORMATION
  Report Type: Spontaneous
  Country: US (occurrence: US)
  Receive Date: 20251119
  Receipt Date: 20251128
  Transmission Date: 20260118
  Serious: Yes (Life-Threatening, Hospitalization)
  Sender: TEVA
  Company Number: US-TEVA-VS-3392321

PATIENT
  Age: 67 Year
  Sex: Female

DRUGS (14)
  1. EPINEPHRINE [Suspect]
     Active Substance: EPINEPHRINE
     Indication: Cardiogenic shock
     Route: 065
  2. EPINEPHRINE [Suspect]
     Active Substance: EPINEPHRINE
     Indication: Vasoplegia syndrome
  3. INSULIN NOS [Suspect]
     Active Substance: INSULIN NOS
     Indication: Ejection fraction decreased
     Dosage: 10 UNITS/KG
     Route: 065
  4. CITALOPRAM [Suspect]
     Active Substance: CITALOPRAM
     Indication: Major depression
     Dosage: ESTIMATED 90-DAY SUPPLY, 3,600 MG
     Route: 065
  5. SODIUM BICARBONATE [Suspect]
     Active Substance: SODIUM BICARBONATE
     Indication: Cardiogenic shock
     Route: 065
  6. ATORVASTATIN [Concomitant]
     Active Substance: ATORVASTATIN
     Indication: Product used for unknown indication
  7. NOREPINEPHRINE [Suspect]
     Active Substance: NOREPINEPHRINE
     Indication: Cardiogenic shock
     Route: 065
  8. VASOPRESSIN [Suspect]
     Active Substance: VASOPRESSIN
     Indication: Cardiogenic shock
     Dosage: 0.06 UNITS/MIN
     Route: 065
  9. CALCIUM LACTATE [Suspect]
     Active Substance: CALCIUM LACTATE
     Indication: Haemodynamic instability
     Route: 065
  10. DOPAMINE [Suspect]
     Active Substance: DOPAMINE HYDROCHLORIDE
     Indication: Cardiogenic shock
     Route: 065
  11. AMLODIPINE [Concomitant]
     Active Substance: AMLODIPINE BESYLATE
     Indication: Hypertension
  12. PHENYLEPHRINE [Suspect]
     Active Substance: PHENYLEPHRINE
     Indication: Cardiogenic shock
     Route: 065
  13. METHYLENE BLUE [Suspect]
     Active Substance: METHYLENE BLUE
     Indication: Cardiogenic shock
     Route: 065
  14. DEVICE [Suspect]
     Active Substance: DEVICE

REACTIONS (10)
  - Drug ineffective [Unknown]
  - Treatment noncompliance [Unknown]
  - Ejection fraction decreased [Recovered/Resolved]
  - Acute kidney injury [Recovered/Resolved]
  - Overdose [Unknown]
  - Seizure [Recovered/Resolved]
  - Nodal arrhythmia [Recovered/Resolved]
  - Oliguria [Recovered/Resolved]
  - Cardiogenic shock [Recovered/Resolved]
  - Vasoplegia syndrome [Recovered/Resolved]
